FAERS Safety Report 6134320-X (Version None)
Quarter: 2009Q1

REPORT INFORMATION
  Report Type: 
  Country: None (occurrence: None)
  Receive Date: 20090325
  Receipt Date: 20090316
  Transmission Date: 20090719
  Serious: Yes (Other)
  Sender: FDA-Public Use
  Company Number: 188179ISR

PATIENT

DRUGS (1)
  1. MORPHINE [Suspect]
     Indication: INTESTINAL ATRESIA

REACTIONS (2)
  - MUSCLE RIGIDITY [None]
  - RESPIRATORY FAILURE [None]
